FAERS Safety Report 26135722 (Version 3)
Quarter: 2025Q4

REPORT INFORMATION
  Report Type: Report from Study
  Country: JP (occurrence: JP)
  Receive Date: 20251209
  Receipt Date: 20251216
  Transmission Date: 20260118
  Serious: Yes (Death, Other)
  Sender: PFIZER
  Company Number: JP-PFIZER INC-PV202500143167

PATIENT
  Age: 75 Year
  Sex: Female
  Weight: 43.4 kg

DRUGS (1)
  1. ELRANATAMAB [Suspect]
     Active Substance: ELRANATAMAB
     Indication: Plasma cell myeloma refractory
     Dosage: 12 MG, ONCE EVERY TWO WEEKS
     Dates: start: 20240916, end: 20241015

REACTIONS (1)
  - Death [Fatal]
